FAERS Safety Report 5679753-0 (Version None)
Quarter: 2008Q1

REPORT INFORMATION
  Report Type: 
  Country: None (occurrence: None)
  Receive Date: 20080324
  Receipt Date: 20080314
  Transmission Date: 20080703
  Serious: Yes (Hospitalization, Other)
  Sender: FDA-Public Use
  Company Number: 163-20785-07040446

PATIENT
  Age: 58 Year
  Sex: Female
  Weight: 51.7101 kg

DRUGS (13)
  1. THALOMID [Suspect]
     Indication: OVARIAN CANCER
     Dosage: 20 MG, QD FOR 28 DAYS, ORAL
     Route: 048
     Dates: start: 20070301, end: 20070314
  2. TOPOTECAN    (TOPOTECAN) [Suspect]
     Indication: OVARIAN CANCER
     Dates: start: 20070301
  3. PROVIGIL (MODAFINIL) (100 MILLIGRAM, TABLETS) [Concomitant]
  4. ZELNORM [Suspect]
  5. COMPAZINE (PROCHLORPERAZINE EDISYLATE) [Concomitant]
  6. ATIVAN [Concomitant]
  7. TRAZODONE HCL [Concomitant]
  8. DEXAMETHASONE TAB [Concomitant]
  9. MARINOL (DRONABINOL),(2.5 MILLIGRAM, CAPSULES) [Concomitant]
  10. BONIVA (IBANDRONATE SODIUM) (150 MILLIGRAM, TABLETS) [Concomitant]
  11. MIRALAX (MACROGOL)(POWDER) [Concomitant]
  12. COLACE (DOCUSATE SODIUM) (100 MILLIGRAM, CAPSULES) [Concomitant]
  13. EMEND TRI-FOLD (APREPITANT) [Concomitant]

REACTIONS (7)
  - ABDOMINAL DISCOMFORT [None]
  - DRUG TOXICITY [None]
  - INTERSTITIAL LUNG DISEASE [None]
  - LYMPHADENOPATHY [None]
  - NAUSEA [None]
  - NEUROPATHY PERIPHERAL [None]
  - THROMBOCYTOPENIA [None]
